FAERS Safety Report 20346942 (Version 17)
Quarter: 2022Q3

REPORT INFORMATION
  Report Type: Report from Study
  Country: US (occurrence: US)
  Receive Date: 20220118
  Receipt Date: 20220930
  Transmission Date: 20221026
  Serious: Yes (Hospitalization)
  Sender: FDA-Public Use
  Company Number: US-NOVARTISTESTPH-NVSC2022US009949

PATIENT
  Age: 33 Year
  Sex: Female
  Weight: 71.202 kg

DRUGS (6)
  1. TREPROSTINIL [Suspect]
     Active Substance: TREPROSTINIL
     Indication: Pulmonary arterial hypertension
     Dosage: 40 NG/KG/MIN, CONT
     Route: 042
     Dates: start: 20220112
  2. TREPROSTINIL [Suspect]
     Active Substance: TREPROSTINIL
     Dosage: 60 NG/KG/MIN, CONT
     Route: 042
  3. TREPROSTINIL [Suspect]
     Active Substance: TREPROSTINIL
     Dosage: 70 NG/KG/MIN, CONT
     Route: 042
  4. TREPROSTINIL [Suspect]
     Active Substance: TREPROSTINIL
     Dosage: 70 NG/KG/MIN, CONT
     Route: 042
  5. OPSUMIT [Suspect]
     Active Substance: MACITENTAN
     Indication: Product used for unknown indication
     Dosage: UNK
     Route: 065
  6. TADALAFIL [Concomitant]
     Active Substance: TADALAFIL
     Indication: Product used for unknown indication
     Dosage: UNK
     Route: 065

REACTIONS (24)
  - Oedema [Unknown]
  - Feeling abnormal [Unknown]
  - Cardiac failure [Unknown]
  - Joint swelling [Not Recovered/Not Resolved]
  - Dyspnoea [Unknown]
  - Hypervolaemia [Unknown]
  - Cyanosis [Unknown]
  - Chest discomfort [Unknown]
  - Pulmonary hypertension [Unknown]
  - Pain [Unknown]
  - Erythema [Unknown]
  - Skin irritation [Unknown]
  - Flushing [Unknown]
  - Hyperhidrosis [Unknown]
  - Head discomfort [Unknown]
  - Heart rate decreased [Unknown]
  - Dizziness [Unknown]
  - Swelling [Unknown]
  - Pain in extremity [Recovering/Resolving]
  - Pain in jaw [Unknown]
  - Injection site pruritus [Unknown]
  - Injection site irritation [Recovering/Resolving]
  - Injection site erythema [Recovering/Resolving]
  - Product dose omission issue [Unknown]

NARRATIVE: CASE EVENT DATE: 20220330
